FAERS Safety Report 7649988-6 (Version None)
Quarter: 2011Q3

REPORT INFORMATION
  Report Type: 
  Country: None (occurrence: None)
  Receive Date: 20110802
  Receipt Date: 20110721
  Transmission Date: 20111222
  Serious: Yes (Life-Threatening, Other)
  Sender: FDA-Public Use
  Company Number: FR-JNJFOC-20110705232

PATIENT
  Age: 8 Year
  Sex: Female

DRUGS (5)
  1. HUMIRA [Concomitant]
  2. IMURAN [Concomitant]
  3. REMICADE [Suspect]
     Indication: CROHN'S DISEASE
     Route: 042
     Dates: start: 20090501, end: 20091222
  4. REMICADE [Suspect]
     Dosage: SECOND INFUSION
     Route: 042
     Dates: start: 20110601, end: 20110701
  5. PREDNISONE [Concomitant]

REACTIONS (4)
  - TACHYCARDIA [None]
  - DRUG INEFFECTIVE [None]
  - DYSPNOEA [None]
  - INFUSION RELATED REACTION [None]
